FAERS Safety Report 4581876-4 (Version None)
Quarter: 2005Q1

REPORT INFORMATION
  Report Type: 
  Country: None (occurrence: None)
  Receive Date: 20050214
  Receipt Date: 20040329
  Transmission Date: 20050727
  Serious: Yes (Other)
  Sender: FDA-Public Use
  Company Number: US-GLAXOSMITHKLINE-A0504872A

PATIENT
  Age: 55 Year
  Sex: Female

DRUGS (3)
  1. LAMICTAL [Suspect]
     Indication: EPILEPSY
     Dosage: 100MG PER DAY
     Route: 048
     Dates: end: 20040326
  2. PAXIL [Concomitant]
  3. SEROQUEL [Concomitant]

REACTIONS (3)
  - AMNESIA [None]
  - CONVULSION [None]
  - FALL [None]
